FAERS Safety Report 9665957 (Version 2)
Quarter: 2013Q4

REPORT INFORMATION
  Report Type: Spontaneous
  Country: AR (occurrence: AR)
  Receive Date: 20131104
  Receipt Date: 20131107
  Transmission Date: 20140711
  Serious: Yes (Life-Threatening)
  Sender: FDA-Public Use
  Company Number: AR-ASTRAZENECA-2013SE80496

PATIENT
  Age: 44 Year
  Sex: Male

DRUGS (2)
  1. BRILINTA [Suspect]
     Indication: ANTIPLATELET THERAPY
     Route: 048
     Dates: start: 20131028, end: 20131031
  2. CARVEDILOL [Concomitant]
     Dosage: 3.125 MG

REACTIONS (1)
  - Cardiac arrest [Recovered/Resolved]
